FAERS Safety Report 6829863-7 (Version None)
Quarter: 2010Q3

REPORT INFORMATION
  Report Type: 
  Country: None (occurrence: None)
  Receive Date: 20100710
  Receipt Date: 20090806
  Transmission Date: 20110219
  Serious: Yes (Disabling)
  Sender: FDA-Public Use
  Company Number: GB-JNJFOC-20100701229

PATIENT
  Age: 75 Year
  Sex: Male

DRUGS (9)
  1. ACETAMINOPHEN AND CODEINE PHOSPHATE [Suspect]
     Indication: PAIN
     Route: 048
  2. SIMVASTATIN [Suspect]
     Indication: CARDIOVASCULAR DISORDER
     Route: 048
  3. CARVEDILOL [Suspect]
     Indication: CARDIOVASCULAR DISORDER
     Route: 048
  4. FUROSEMIDE [Suspect]
     Indication: CARDIOVASCULAR DISORDER
     Route: 048
  5. IRBESARTAN [Suspect]
     Indication: CARDIOVASCULAR DISORDER
     Route: 048
  6. RABEPRAZOLE SODIUM [Suspect]
     Indication: PRODUCT USED FOR UNKNOWN INDICATION
     Route: 048
  7. AMLODIPINE [Suspect]
     Indication: CARDIOVASCULAR DISORDER
     Route: 048
  8. ZIMOVANE [Suspect]
     Indication: INSOMNIA
     Route: 065
  9. FERROUS SULFATE TAB [Concomitant]

REACTIONS (2)
  - ANGIOEDEMA [None]
  - SWOLLEN TONGUE [None]
